FAERS Safety Report 6821766-7 (Version None)
Quarter: 2010Q3

REPORT INFORMATION
  Report Type: 
  Country: None (occurrence: None)
  Receive Date: 20100707
  Receipt Date: 20100707
  Transmission Date: 20110219
  Serious: No
  Sender: FDA-Public Use
  Company Number: None

PATIENT
  Age: 30 Year
  Sex: Female
  Weight: 58.9676 kg

DRUGS (1)
  1. PHENERGAN [Suspect]
     Indication: NAUSEA
     Dosage: ONCE SQ
     Route: 058

REACTIONS (5)
  - HYPOAESTHESIA [None]
  - INJECTION SITE PAIN [None]
  - MEDICATION ERROR [None]
  - NERVE INJURY [None]
  - WRONG TECHNIQUE IN DRUG USAGE PROCESS [None]
